FAERS Safety Report 12537122 (Version 1)
Quarter: 2016Q3

REPORT INFORMATION
  Report Type: Spontaneous
  Country: FR (occurrence: FR)
  Receive Date: 20160707
  Receipt Date: 20160707
  Transmission Date: 20161109
  Serious: Yes (Death, Other)
  Sender: FDA-Public Use
  Company Number: FR-JNJFOC-20160622602

PATIENT

DRUGS (4)
  1. ADALIMUMAB [Suspect]
     Active Substance: ADALIMUMAB
     Indication: CROHN^S DISEASE
     Route: 065
  2. INFLIXIMAB, RECOMBINANT [Suspect]
     Active Substance: INFLIXIMAB
     Indication: COLITIS ULCERATIVE
     Route: 042
  3. INFLIXIMAB, RECOMBINANT [Suspect]
     Active Substance: INFLIXIMAB
     Indication: CROHN^S DISEASE
     Route: 042
  4. ADALIMUMAB [Suspect]
     Active Substance: ADALIMUMAB
     Indication: COLITIS ULCERATIVE
     Route: 065

REACTIONS (11)
  - Metastases to central nervous system [Unknown]
  - Small intestine carcinoma recurrent [Fatal]
  - Tongue cancer recurrent [Fatal]
  - Prostatic specific antigen increased [Unknown]
  - Hepatosplenic T-cell lymphoma [Fatal]
  - Basal cell carcinoma [Recovering/Resolving]
  - Metastasis [Unknown]
  - Sepsis [Fatal]
  - Squamous cell carcinoma [Fatal]
  - Bladder cancer recurrent [Unknown]
  - Breast cancer [Recovering/Resolving]
